FAERS Safety Report 6731890-5 (Version None)
Quarter: 2010Q2

REPORT INFORMATION
  Report Type: 
  Country: None (occurrence: None)
  Receive Date: 20100514
  Receipt Date: 20100506
  Transmission Date: 20101027
  Serious: No
  Sender: FDA-Public Use
  Company Number: 002580

PATIENT
  Sex: Female
  Weight: 53.978 kg

DRUGS (11)
  1. ROTIGOTINE [Suspect]
     Indication: PARKINSON'S DISEASE
     Dosage: 6 MG QD TRANSDERMAL
     Route: 062
     Dates: start: 20090306, end: 20091128
  2. SINEMET [Concomitant]
  3. COMTAN [Concomitant]
  4. PRILOSEC /00661201/ [Concomitant]
  5. AMANTADINE HCL [Concomitant]
  6. DIDRONEL /00553202/ [Concomitant]
  7. DETROL /01350201/ [Concomitant]
  8. PAXIL [Concomitant]
  9. SEROQUEL [Concomitant]
  10. DIOVAN HCT [Concomitant]
  11. CARAFATE [Concomitant]

REACTIONS (1)
  - CEREBROVASCULAR ACCIDENT [None]
